FAERS Safety Report 4642590-X (Version None)
Quarter: 2005Q2

REPORT INFORMATION
  Report Type: 
  Country: None (occurrence: None)
  Receive Date: 20050422
  Receipt Date: 20050414
  Transmission Date: 20051028
  Serious: Yes (Hospitalization)
  Sender: FDA-Public Use
  Company Number: US-MERCK-0504USA03149

PATIENT
  Age: 67 Year
  Sex: Male

DRUGS (1)
  1. VIOXX [Suspect]
     Indication: ARTHRITIS
     Route: 048
     Dates: start: 20000101, end: 20040920

REACTIONS (4)
  - EMOTIONAL DISTRESS [None]
  - MYOCARDIAL INFARCTION [None]
  - PAIN [None]
  - SELF ESTEEM DECREASED [None]
